FAERS Safety Report 6468072-0 (Version None)
Quarter: 2009Q4

REPORT INFORMATION
  Report Type: 
  Country: None (occurrence: None)
  Receive Date: 20091202
  Receipt Date: 20081123
  Transmission Date: 20100525
  Serious: No
  Sender: FDA-Public Use
  Company Number: US-AMGEN-KDL320391

PATIENT
  Sex: Female

DRUGS (1)
  1. ENBREL [Suspect]
     Indication: ARTHRALGIA
     Route: 058
     Dates: start: 20080815

REACTIONS (4)
  - EAR CONGESTION [None]
  - OROPHARYNGEAL PAIN [None]
  - POSTNASAL DRIP [None]
  - SINUS HEADACHE [None]
